FAERS Safety Report 8170066-4 (Version None)
Quarter: 2012Q1

REPORT INFORMATION
  Report Type: 
  Country: None (occurrence: None)
  Receive Date: 20120228
  Receipt Date: 20120217
  Transmission Date: 20120608
  Serious: Yes (Hospitalization)
  Sender: FDA-Public Use
  Company Number: FR-SANOFI-AVENTIS-2012SA010655

PATIENT
  Age: 32 Year
  Sex: Female
  Weight: 47 kg

DRUGS (1)
  1. LANTUS [Suspect]
     Dosage: DOSE:8 UNIT(S)
     Route: 058
     Dates: start: 20111213

REACTIONS (3)
  - GENERALISED OEDEMA [None]
  - PLEURAL EFFUSION [None]
  - OEDEMA PERIPHERAL [None]
